FAERS Safety Report 16898107 (Version 2)
Quarter: 2019Q4

REPORT INFORMATION
  Report Type: Spontaneous
  Country: JP (occurrence: JP)
  Receive Date: 20191009
  Receipt Date: 20191030
  Transmission Date: 20200122
  Serious: Yes (Disabling, Other)
  Sender: FDA-Public Use
  Company Number: JP-PFIZER INC-2019432410

PATIENT
  Age: 87 Year
  Sex: Female

DRUGS (4)
  1. DENOTAS [Concomitant]
     Active Substance: CALCIUM CARBONATE\CHOLECALCIFEROL\MAGNESIUM CARBONATE
     Indication: OSTEOPOROSIS
     Dosage: 1, 1X/DAY
     Route: 048
     Dates: start: 20170711
  2. MOHRUS [Concomitant]
     Active Substance: KETOPROFEN
     Indication: LUMBAR SPINAL STENOSIS
     Dosage: 20 MG, UNK
  3. LYRICA [Suspect]
     Active Substance: PREGABALIN
     Indication: NEURALGIA
     Dosage: 75 MG, 1X/DAY(DAILY BEFORE BEDTIME)
     Route: 048
     Dates: start: 20190925, end: 20190927
  4. MECOBALAMIN [Concomitant]
     Active Substance: METHYLCOBALAMIN
     Indication: LUMBAR SPINAL STENOSIS
     Dosage: 500 MG, 3X/DAY
     Route: 048
     Dates: start: 20160909

REACTIONS (5)
  - Fall [Unknown]
  - Dizziness [Recovered/Resolved]
  - Altered state of consciousness [Unknown]
  - Humerus fracture [Not Recovered/Not Resolved]
  - Vertigo [Unknown]

NARRATIVE: CASE EVENT DATE: 2019
